FAERS Safety Report 13003897 (Version 2)
Quarter: 2017Q1

REPORT INFORMATION
  Report Type: Report from Study
  Country: US (occurrence: US)
  Receive Date: 20161206
  Receipt Date: 20170227
  Transmission Date: 20170428
  Serious: Yes (Hospitalization)
  Sender: FDA-Public Use
  Company Number: US-EISAI MEDICAL RESEARCH-EC-2016-022826

PATIENT
  Age: 78 Year
  Sex: Male
  Weight: 33.15 kg

DRUGS (35)
  1. ERIBULIN [Suspect]
     Active Substance: ERIBULIN
     Route: 041
     Dates: end: 2017
  2. POTASSIUM CHLORIDE. [Concomitant]
     Active Substance: POTASSIUM CHLORIDE
  3. MYOBLOC IM [Concomitant]
  4. IBUPROFEN. [Concomitant]
     Active Substance: IBUPROFEN
  5. TIOTROPIUM BROMIDE-OLODATEROL [Concomitant]
  6. DILTIAZEM HCL [Concomitant]
     Active Substance: DILTIAZEM HYDROCHLORIDE
  7. LYRICA [Concomitant]
     Active Substance: PREGABALIN
  8. CLARITIN [Concomitant]
     Active Substance: LORATADINE
  9. SM NON-ASPIRIN SINUS PO [Concomitant]
  10. PROCHLORPERAZINE MALEATE. [Concomitant]
     Active Substance: PROCHLORPERAZINE MALEATE
  11. ERIBULIN [Suspect]
     Active Substance: ERIBULIN
     Indication: LUNG SQUAMOUS CELL CARCINOMA METASTATIC
     Route: 041
     Dates: start: 20161025, end: 20161122
  12. FUROSEMIDE. [Concomitant]
     Active Substance: FUROSEMIDE
  13. DEXTROMETHORPHAN GUAIFENESIN [Concomitant]
  14. ALBUTEROL. [Concomitant]
     Active Substance: ALBUTEROL
  15. DEXTRIN\WHEAT [Concomitant]
     Active Substance: ICODEXTRIN\WHEAT
  16. SYSTANE OPHTHALMIC [Concomitant]
  17. LENVATINIB [Suspect]
     Active Substance: LENVATINIB
     Indication: LUNG SQUAMOUS CELL CARCINOMA METASTATIC
     Route: 048
     Dates: start: 20161026, end: 20161127
  18. LOVENOX [Concomitant]
     Active Substance: ENOXAPARIN SODIUM
  19. LENVATINIB [Suspect]
     Active Substance: LENVATINIB
     Route: 048
     Dates: end: 20170210
  20. CARBIDOPA-LEVIDOPA-ENTACAPONE [Concomitant]
  21. MEGESTROL [Concomitant]
     Active Substance: MEGESTROL
  22. OXYCODONE [Concomitant]
     Active Substance: OXYCODONE
  23. IPRATROPIUM [Concomitant]
     Active Substance: IPRATROPIUM
  24. POLYETHYLENE GLYCOL [Concomitant]
     Active Substance: POLYETHYLENE GLYCOLS
  25. FERROUS SULFATE. [Concomitant]
     Active Substance: FERROUS SULFATE
  26. FENTANYL. [Concomitant]
     Active Substance: FENTANYL
  27. SODIUM CHLORIDE. [Concomitant]
     Active Substance: SODIUM CHLORIDE
  28. ACETAMINOPHEN. [Concomitant]
     Active Substance: ACETAMINOPHEN
  29. CHERATUSSIN AC [Concomitant]
     Active Substance: CODEINE PHOSPHATE\GUAIFENESIN
  30. COLACE [Concomitant]
     Active Substance: DOCUSATE SODIUM
  31. FLUTICASONE FUROATE [Concomitant]
     Active Substance: FLUTICASONE FUROATE
  32. POLYETHYL GLYCOL -PROPYL GLYCOL [Concomitant]
  33. ZAFIRLUKAST. [Concomitant]
     Active Substance: ZAFIRLUKAST
  34. BENAZEPRIL [Concomitant]
     Active Substance: BENAZEPRIL HYDROCHLORIDE
  35. PERCOCET [Concomitant]
     Active Substance: ACETAMINOPHEN\OXYCODONE HYDROCHLORIDE

REACTIONS (5)
  - Asthenia [Recovering/Resolving]
  - Mental status changes [Recovering/Resolving]
  - Decreased appetite [Recovering/Resolving]
  - Febrile neutropenia [Recovering/Resolving]
  - Haemorrhage [Recovering/Resolving]

NARRATIVE: CASE EVENT DATE: 20161127
